FAERS Safety Report 17563688 (Version 1)
Quarter: 2020Q1

REPORT INFORMATION
  Report Type: Spontaneous
  Country: US (occurrence: US)
  Receive Date: 20200320
  Receipt Date: 20200320
  Transmission Date: 20200409
  Serious: No
  Sender: FDA-Public Use
  Company Number: US-009507513-2003USA006540

PATIENT
  Sex: Male

DRUGS (2)
  1. ASMANEX [Suspect]
     Active Substance: MOMETASONE FUROATE
     Dosage: 60 DOSES; 2 DOSES ONCE A DAY
     Dates: start: 200003
  2. ASMANEX [Suspect]
     Active Substance: MOMETASONE FUROATE
     Dosage: 60 DOSES; 2 DOSES ONCE A DAY
     Dates: start: 20200304

REACTIONS (4)
  - Product dose omission [Unknown]
  - No adverse event [Unknown]
  - Product quality issue [Unknown]
  - Poor quality device used [Unknown]

NARRATIVE: CASE EVENT DATE: 20200309
